FAERS Safety Report 26102740 (Version 1)
Quarter: 2025Q4

REPORT INFORMATION
  Report Type: Spontaneous
  Country: EU (occurrence: EU)
  Receive Date: 20251128
  Receipt Date: 20251128
  Transmission Date: 20260118
  Serious: Yes (Life-Threatening, Hospitalization, Other)
  Sender: PFIZER
  Company Number: None

PATIENT
  Age: 33 Year
  Sex: Female

DRUGS (5)
  1. LORAZEPAM [Suspect]
     Active Substance: LORAZEPAM
     Indication: Suicide attempt
     Dosage: 65 MG (TOTAL)
     Route: 048
     Dates: start: 20250918, end: 20250918
  2. LORMETAZEPAM [Suspect]
     Active Substance: LORMETAZEPAM
     Indication: Suicide attempt
     Dosage: 80 MG  (TOTAL)
     Route: 048
     Dates: start: 20250918, end: 20250918
  3. CLOTHIAPINE [Suspect]
     Active Substance: CLOTHIAPINE
     Indication: Suicide attempt
     Dosage: 1200 MG, ( (TOTAL 30 TABLETS)
     Route: 048
     Dates: start: 20250918, end: 20250918
  4. BILASTINE [Suspect]
     Active Substance: BILASTINE
     Indication: Suicide attempt
     Dosage: 1200 MG  (TOTAL)
     Route: 048
     Dates: start: 20250918, end: 20250918
  5. LAMOTRIGINE [Suspect]
     Active Substance: LAMOTRIGINE
     Indication: Suicide attempt
     Dosage: 1120 MG  (TOTAL)
     Route: 048
     Dates: start: 20250918, end: 20250918

REACTIONS (4)
  - Lactic acidosis [Recovered/Resolved]
  - Coma [Recovered/Resolved]
  - Intentional overdose [Unknown]
  - Off label use [Unknown]

NARRATIVE: CASE EVENT DATE: 20250918
